FAERS Safety Report 18415844 (Version 1)
Quarter: 2020Q4

REPORT INFORMATION
  Report Type: Report from Study
  Country: NL (occurrence: NL)
  Receive Date: 20201022
  Receipt Date: 20201022
  Transmission Date: 20210114
  Serious: Yes (Other)
  Sender: FDA-Public Use
  Company Number: NL-JNJFOC-20201024977

PATIENT

DRUGS (3)
  1. RISPERDAL [Suspect]
     Active Substance: RISPERIDONE
     Indication: MENTAL DISORDER
  2. RISPERDAL [Suspect]
     Active Substance: RISPERIDONE
     Indication: TIC
     Route: 065
  3. CONCERTA [Suspect]
     Active Substance: METHYLPHENIDATE HYDROCHLORIDE
     Indication: ATTENTION DEFICIT HYPERACTIVITY DISORDER
     Route: 065

REACTIONS (18)
  - Irritability [Unknown]
  - Suicidal ideation [Unknown]
  - Psychotic disorder [Unknown]
  - Depression [Unknown]
  - Restlessness [Unknown]
  - Hallucination, auditory [Unknown]
  - Aggression [Unknown]
  - Sleep disorder [Unknown]
  - Anxiety [Unknown]
  - Insomnia [Unknown]
  - Drug dependence [Unknown]
  - Tic [Unknown]
  - Anger [Unknown]
  - Hallucination, visual [Unknown]
  - Depressed mood [Unknown]
  - Hallucination [Unknown]
  - Agitation [Unknown]
  - Abnormal behaviour [Unknown]
